FAERS Safety Report 14139997 (Version 1)
Quarter: 2017Q4

REPORT INFORMATION
  Report Type: Spontaneous
  Country: SK (occurrence: SK)
  Receive Date: 20171030
  Receipt Date: 20171030
  Transmission Date: 20180321
  Serious: Yes (Hospitalization, Disabling)
  Sender: FDA-Public Use
  Company Number: SK-ORION CORPORATION ORION PHARMA-17_00002681

PATIENT
  Age: 69 Year
  Sex: Female
  Weight: 80 kg

DRUGS (4)
  1. TREXAN [Suspect]
     Active Substance: METHOTREXATE SODIUM
     Indication: PSORIASIS
     Route: 048
     Dates: start: 201202, end: 201708
  2. HUMIRA [Suspect]
     Active Substance: ADALIMUMAB
     Indication: PSORIASIS
     Route: 058
     Dates: start: 201106, end: 201708
  3. ENELBIN RETARD [Concomitant]
     Indication: VASCULAR HEADACHE
     Route: 048
  4. LUSOPRESS [Concomitant]
     Active Substance: NITRENDIPINE
     Indication: HYPERTENSION
     Route: 048

REACTIONS (2)
  - Pulmonary embolism [Unknown]
  - Glioma [Unknown]

NARRATIVE: CASE EVENT DATE: 201708
